FAERS Safety Report 6058035-1 (Version None)
Quarter: 2009Q1

REPORT INFORMATION
  Report Type: 
  Country: None (occurrence: None)
  Receive Date: 20090127
  Receipt Date: 20090121
  Transmission Date: 20090719
  Serious: Yes (Other)
  Sender: FDA-Public Use
  Company Number: 2008SP025847

PATIENT
  Age: 20 Year
  Sex: Female

DRUGS (1)
  1. MOMETASONE FUROATE [Suspect]
     Indication: ECZEMA
     Dosage: ; TOP
     Route: 061

REACTIONS (2)
  - ANAPHYLACTIC REACTION [None]
  - DERMATITIS CONTACT [None]
